FAERS Safety Report 15060988 (Version 1)
Quarter: 2018Q2

REPORT INFORMATION
  Report Type: Spontaneous
  Country: US (occurrence: US)
  Receive Date: 20180625
  Receipt Date: 20180625
  Transmission Date: 20180711
  Serious: No
  Sender: FDA-Public Use
  Company Number: US-ROCHE-2031654

PATIENT

DRUGS (1)
  1. KLONOPIN [Suspect]
     Active Substance: CLONAZEPAM
     Indication: PRODUCT USED FOR UNKNOWN INDICATION
     Dosage: UNKNOWN
     Route: 065

REACTIONS (3)
  - No adverse event [Unknown]
  - Circumstance or information capable of leading to medication error [Unknown]
  - Product physical issue [Unknown]

NARRATIVE: CASE EVENT DATE: 20171122
